FAERS Safety Report 16937847 (Version 2)
Quarter: 2019Q4

REPORT INFORMATION
  Report Type: Report from Study
  Country: CA (occurrence: CA)
  Receive Date: 20191018
  Receipt Date: 20191202
  Transmission Date: 20200122
  Serious: Yes (Hospitalization, Other)
  Sender: FDA-Public Use
  Company Number: CA-GLAXOSMITHKLINE-CA2019AMR188623

PATIENT
  Sex: Male

DRUGS (3)
  1. MEPOLIZUMAB [Suspect]
     Active Substance: MEPOLIZUMAB
     Indication: ASTHMA
     Dosage: 100 MG, Z (MONTHLY)
     Route: 042
     Dates: start: 20190821
  2. MEPOLIZUMAB [Suspect]
     Active Substance: MEPOLIZUMAB
     Dosage: 100 MG, Z
     Route: 042
  3. LASIX [Suspect]
     Active Substance: FUROSEMIDE
     Indication: PRODUCT USED FOR UNKNOWN INDICATION
     Dosage: UNK
     Route: 042

REACTIONS (12)
  - Cardiac failure congestive [Unknown]
  - Pyrexia [Unknown]
  - Nausea [Unknown]
  - Malaise [Unknown]
  - Hospitalisation [Unknown]
  - Fluid retention [Unknown]
  - Blood creatinine increased [Unknown]
  - Respiratory tract congestion [Unknown]
  - Dyspnoea [Unknown]
  - Renal impairment [Unknown]
  - Chills [Unknown]
  - Dizziness [Unknown]
